FAERS Safety Report 5786045-8 (Version None)
Quarter: 2008Q2

REPORT INFORMATION
  Report Type: 
  Country: None (occurrence: None)
  Receive Date: 20080620
  Receipt Date: 20080620
  Transmission Date: 20081010
  Serious: Yes (Hospitalization)
  Sender: FDA-Public Use
  Company Number: None

PATIENT
  Sex: Female
  Weight: 105.2345 kg

DRUGS (8)
  1. SEROQUEL XR [Suspect]
     Indication: BIPOLAR DISORDER
     Dosage: 300 MG BEDTIME PO 1 DOSE
     Dates: start: 20080326, end: 20080328
  2. SEROQUEL XR [Suspect]
     Indication: CONDUCTION DISORDER
     Dosage: 300 MG BEDTIME PO 1 DOSE
     Dates: start: 20080326, end: 20080328
  3. SERTRALINE HYDROCHLORIDE [Concomitant]
  4. LITHIUM CARBONATE ER [Concomitant]
  5. ARIPIPRAZOLE [Concomitant]
  6. OXYBUTYNIN CHLORIDE [Concomitant]
  7. DIPHENHYDRAMINE HCL [Concomitant]
  8. QUETIAPINE FUMARATE [Concomitant]

REACTIONS (6)
  - BRADYCARDIA [None]
  - DIZZINESS [None]
  - GRIP STRENGTH DECREASED [None]
  - HYPOTENSION [None]
  - MENTAL STATUS CHANGES [None]
  - SYNCOPE [None]
